FAERS Safety Report 9940465 (Version 4)
Quarter: 2014Q2

REPORT INFORMATION
  Report Type: Spontaneous
  Country: US (occurrence: US)
  Receive Date: 20140303
  Receipt Date: 20140507
  Transmission Date: 20141212
  Serious: Yes (Other)
  Sender: FDA-Public Use
  Company Number: US-PFIZER INC-2014050302

PATIENT
  Age: 80 Year
  Sex: Male
  Weight: 95.24 kg

DRUGS (11)
  1. LYRICA [Suspect]
     Indication: ARTHRALGIA
     Dosage: 75 MG, 2X/DAY
     Route: 048
     Dates: start: 20140213
  2. LYRICA [Suspect]
     Indication: PROCEDURAL PAIN
  3. LYRICA [Suspect]
     Indication: POST PROCEDURAL SWELLING
  4. LYRICA [Suspect]
     Indication: PROCEDURAL PAIN
  5. CODEINE [Concomitant]
     Dosage: UNK
  6. WARFARIN [Concomitant]
     Indication: PROTHROMBIN LEVEL ABNORMAL
     Dosage: UNK, 1X/DAY
  7. FINASTERIDE [Concomitant]
     Indication: PROSTATOMEGALY
     Dosage: 5 MG, 1X/DAY
  8. DIAZEPAM [Concomitant]
     Dosage: UNK
  9. BUSPAR [Concomitant]
     Dosage: UNK
  10. LISINOPRIL [Concomitant]
     Indication: HYPERTENSION
     Dosage: 10 MG, 2X/DAY
  11. SIMVASTATIN [Concomitant]
     Indication: BLOOD CHOLESTEROL INCREASED
     Dosage: UNK, 1X/DAY

REACTIONS (4)
  - Fall [Unknown]
  - Balance disorder [Unknown]
  - Drug ineffective [Unknown]
  - Blood test abnormal [Unknown]
